FAERS Safety Report 5654745-6 (Version None)
Quarter: 2008Q1

REPORT INFORMATION
  Report Type: 
  Country: None (occurrence: None)
  Receive Date: 20080219
  Receipt Date: 20071022
  Transmission Date: 20080703
  Serious: No
  Sender: FDA-Public Use
  Company Number: WAES 0710USA04320

PATIENT
  Age: 65 Year
  Sex: Female

DRUGS (7)
  1. JANUVIA [Suspect]
     Indication: DIABETES MELLITUS
     Dosage: PO
     Route: 048
     Dates: start: 20060101
  2. ACTOS [Concomitant]
  3. COZAAR [Concomitant]
  4. CRESTOR [Concomitant]
  5. NEXIUM [Concomitant]
  6. ULTRACET [Concomitant]
  7. ZYRTEC [Concomitant]

REACTIONS (1)
  - BLOOD GLUCOSE INCREASED [None]
